FAERS Safety Report 4351056-6 (Version None)
Quarter: 2004Q2

REPORT INFORMATION
  Report Type: 
  Country: None (occurrence: None)
  Receive Date: 20040429
  Receipt Date: 20030603
  Transmission Date: 20050107
  Serious: Yes (Life-Threatening)
  Sender: FDA-Public Use
  Company Number: 2003UW05355

PATIENT
  Age: 45 Year
  Sex: Female
  Weight: 65.7716 kg

DRUGS (7)
  1. ZOMIG-ZMT [Suspect]
     Indication: MENSTRUAL DISORDER
     Dosage: 2-5 MG
     Dates: start: 20010926, end: 20030322
  2. ZOMIG-ZMT [Suspect]
     Indication: MIGRAINE
     Dosage: 2-5 MG
     Dates: start: 20010926, end: 20030322
  3. ZOMIG-ZMT [Suspect]
     Indication: MENSTRUAL DISORDER
     Dosage: 5 MG PRN PO
     Route: 048
     Dates: start: 20020701, end: 20030322
  4. ZOMIG-ZMT [Suspect]
     Indication: MIGRAINE
     Dosage: 5 MG PRN PO
     Route: 048
     Dates: start: 20020701, end: 20030322
  5. ZOLOFT [Concomitant]
  6. EFFEXOR [Concomitant]
  7. ACIPHEX [Concomitant]

REACTIONS (2)
  - ARTERIOSPASM CORONARY [None]
  - MYOCARDIAL ISCHAEMIA [None]
